FAERS Safety Report 13500071 (Version 2)
Quarter: 2017Q2

REPORT INFORMATION
  Report Type: Spontaneous
  Country: IT (occurrence: IT)
  Receive Date: 20170501
  Receipt Date: 20170626
  Transmission Date: 20170830
  Serious: Yes (Hospitalization)
  Sender: FDA-Public Use
  Company Number: IT-NOVOPROD-535383

PATIENT
  Age: 37 Year
  Sex: Female

DRUGS (1)
  1. NOVORAPID [Suspect]
     Active Substance: INSULIN ASPART
     Indication: TYPE 1 DIABETES MELLITUS
     Dosage: UNK
     Route: 058
     Dates: start: 201606

REACTIONS (3)
  - Blood glucose increased [Unknown]
  - Exposure during pregnancy [Unknown]
  - Medical observation [Unknown]

NARRATIVE: CASE EVENT DATE: 20170117
